FAERS Safety Report 13190681 (Version 3)
Quarter: 2017Q3

REPORT INFORMATION
  Report Type: Spontaneous
  Country: US (occurrence: US)
  Receive Date: 20170206
  Receipt Date: 20170811
  Transmission Date: 20171127
  Serious: No
  Sender: FDA-Public Use
  Company Number: US-ACTELION-A-NJ2017-148834

PATIENT
  Age: 60 Year
  Sex: Female

DRUGS (12)
  1. BENICAR [Concomitant]
     Active Substance: OLMESARTAN MEDOXOMIL
  2. OPSUMIT [Suspect]
     Active Substance: MACITENTAN
     Indication: PULMONARY ARTERIAL HYPERTENSION
     Dosage: 10 MG, QD
     Route: 048
     Dates: start: 20141231
  3. DIPHENHYDRAMIN HYDROCHLORIDE [Concomitant]
  4. SPIRIVA [Concomitant]
     Active Substance: TIOTROPIUM BROMIDE MONOHYDRATE
  5. TERBUTALINE SULFATE. [Concomitant]
     Active Substance: TERBUTALINE SULFATE
  6. XALATAN [Concomitant]
     Active Substance: LATANOPROST
  7. ADCIRCA [Concomitant]
     Active Substance: TADALAFIL
  8. TORSEMIDE. [Concomitant]
     Active Substance: TORSEMIDE
  9. OPSUMIT [Suspect]
     Active Substance: MACITENTAN
     Dosage: 10 MG, QD
     Route: 048
     Dates: start: 20140514
  10. SILDENAFIL. [Concomitant]
     Active Substance: SILDENAFIL
  11. DUEXIS [Concomitant]
     Active Substance: FAMOTIDINE\IBUPROFEN
  12. ALBUTEROL SULFATE. [Concomitant]
     Active Substance: ALBUTEROL SULFATE

REACTIONS (5)
  - Hot flush [Unknown]
  - Dyspnoea [Not Recovered/Not Resolved]
  - Blood iron decreased [Unknown]
  - Drug dose omission [Unknown]
  - Red blood cell count decreased [Unknown]

NARRATIVE: CASE EVENT DATE: 201606
